FAERS Safety Report 5206974-3 (Version None)
Quarter: 2007Q1

REPORT INFORMATION
  Report Type: 
  Country: None (occurrence: None)
  Receive Date: 20070105
  Receipt Date: 20070105
  Transmission Date: 20070707
  Serious: Yes (Hospitalization)
  Sender: FDA-Public Use
  Company Number: None

PATIENT
  Age: 48 Year
  Sex: Female
  Weight: 81.0124 kg

DRUGS (2)
  1. GEMZAR [Suspect]
     Indication: PANCREATIC CARCINOMA
     Dosage: 1960  DAY 1, 8, 15 IV DRIP
     Route: 041
     Dates: start: 20061127, end: 20061226
  2. NOVASOY/TARACEA 150 MG PO 3 BID/150 MG PO QD [Suspect]
     Indication: PANCREATIC CARCINOMA
     Dosage: 900 QD/ 150 MG DAY 1-28 PO
     Route: 048
     Dates: start: 20061127, end: 20061226

REACTIONS (1)
  - VOMITING [None]
